FAERS Safety Report 23909091 (Version 4)
Quarter: 2024Q4

REPORT INFORMATION
  Report Type: Report from Study
  Country: SG (occurrence: SG)
  Receive Date: 20240528
  Receipt Date: 20241107
  Transmission Date: 20250115
  Serious: Yes (Life-Threatening, Hospitalization)
  Sender: EISAI
  Company Number: SG-Eisai-EC-2024-166476

PATIENT
  Age: 62 Year
  Sex: Female

DRUGS (3)
  1. LENVATINIB [Suspect]
     Active Substance: LENVATINIB
     Indication: Breast cancer
     Dates: start: 20230410, end: 20240519
  2. LETROZOLE [Suspect]
     Active Substance: LETROZOLE
     Indication: Breast cancer
     Dates: start: 20230410, end: 20241007
  3. PEMBROLIZUMAB [Suspect]
     Active Substance: PEMBROLIZUMAB
     Indication: Breast cancer
     Dates: start: 20230424, end: 20240902

REACTIONS (3)
  - Acute myocardial infarction [Recovering/Resolving]
  - Angina pectoris [Recovered/Resolved]
  - Dysphagia [Recovering/Resolving]

NARRATIVE: CASE EVENT DATE: 20240519
